FAERS Safety Report 10685144 (Version 1)
Quarter: 2014Q4

REPORT INFORMATION
  Report Type: Spontaneous
  Country: US (occurrence: US)
  Receive Date: 20141231
  Receipt Date: 20141231
  Transmission Date: 20150529
  Serious: No
  Sender: FDA-Public Use
  Company Number: US-PFIZER INC-2014357542

PATIENT
  Age: 65 Year
  Sex: Female
  Weight: 77 kg

DRUGS (18)
  1. FUROSEMIDE. [Concomitant]
     Active Substance: FUROSEMIDE
     Indication: DIURETIC THERAPY
     Dosage: 20 MG, AS NEEDED (TWICE A DAY)
     Route: 048
  2. OXYCODONE/PARACETAMOL [Concomitant]
     Indication: PAIN MANAGEMENT
     Dosage: 1 DF, AS NEEDED, EVERY 6 HOURS
     Route: 048
  3. AMBIEN [Concomitant]
     Active Substance: ZOLPIDEM TARTRATE
     Indication: NIGHTMARE
  4. QUETIAPINE [Concomitant]
     Active Substance: QUETIAPINE
     Indication: NIGHTMARE
     Dosage: 50 MG, UNK
  5. BACLOFEN. [Concomitant]
     Active Substance: BACLOFEN
     Indication: BONE DISORDER
     Dosage: 10 MG, 3X/DAY
  6. AMBIEN [Concomitant]
     Active Substance: ZOLPIDEM TARTRATE
     Indication: SLEEP DISORDER
  7. KLOR-CON [Concomitant]
     Active Substance: POTASSIUM CHLORIDE
     Indication: MINERAL SUPPLEMENTATION
     Dosage: 8 MG, 2X/DAY
  8. ONDANSETRON [Concomitant]
     Active Substance: ONDANSETRON
     Indication: VOMITING
  9. PHENTERMINE [Concomitant]
     Active Substance: PHENTERMINE
     Indication: ASTHENIA
     Dosage: 37.5 MG, DAILY
     Route: 048
  10. PREMARIN [Suspect]
     Active Substance: ESTROGENS, CONJUGATED
     Indication: HORMONE REPLACEMENT THERAPY
     Dosage: UNK
  11. ATORVASTATIN [Concomitant]
     Active Substance: ATORVASTATIN
     Indication: BLOOD CHOLESTEROL ABNORMAL
     Dosage: 10 MG, DAILY
     Route: 048
  12. OMEPRAZOLE. [Concomitant]
     Active Substance: OMEPRAZOLE
     Indication: GASTROOESOPHAGEAL REFLUX DISEASE
     Dosage: 40 MG, DAILY
     Route: 048
  13. MORPHINE SULFATE. [Concomitant]
     Active Substance: MORPHINE SULFATE
     Indication: PAIN MANAGEMENT
     Dosage: 30 MG, 2X/DAY
     Route: 048
  14. LEVOTHYROXINE [Concomitant]
     Active Substance: LEVOTHYROXINE
     Indication: THYROID DISORDER
     Dosage: 25 MG, DAILY
     Route: 048
  15. LINZESS [Concomitant]
     Active Substance: LINACLOTIDE
     Indication: COLITIS
     Dosage: 145 MG, DAILY
     Route: 048
  16. ZOFRAN [Concomitant]
     Active Substance: ONDANSETRON HYDROCHLORIDE
     Dosage: 4 MG, 3X/DAY
     Dates: start: 20121029
  17. ONDANSETRON [Concomitant]
     Active Substance: ONDANSETRON
     Indication: NAUSEA
     Dosage: 4 MG, AS NEEDED
     Route: 048
  18. QUETIAPINE [Concomitant]
     Active Substance: QUETIAPINE
     Indication: SLEEP DISORDER

REACTIONS (1)
  - Drug ineffective [Not Recovered/Not Resolved]
